FAERS Safety Report 13935068 (Version 1)
Quarter: 2017Q3

REPORT INFORMATION
  Report Type: Spontaneous
  Country: US (occurrence: None)
  Receive Date: 20170901
  Receipt Date: 20170901
  Transmission Date: 20171127
  Serious: Yes (Hospitalization)
  Sender: FDA-Public Use
  Company Number: None

PATIENT
  Age: 60 Year
  Sex: Male
  Weight: 85.7 kg

DRUGS (1)
  1. XELODA [Suspect]
     Active Substance: CAPECITABINE
     Dates: end: 20170515

REACTIONS (10)
  - Abscess [None]
  - Nausea [None]
  - Deep vein thrombosis [None]
  - Abdominal pain [None]
  - Vomiting [None]
  - Staphylococcus test positive [None]
  - Candida test positive [None]
  - Anastomotic leak [None]
  - Culture positive [None]
  - Pulmonary embolism [None]

NARRATIVE: CASE EVENT DATE: 20170821
